FAERS Safety Report 10832905 (Version 1)
Quarter: 2015Q1

REPORT INFORMATION
  Report Type: Report from Study
  Country: US (occurrence: US)
  Receive Date: 20150219
  Receipt Date: 20150219
  Transmission Date: 20150721
  Serious: No
  Sender: FDA-Public Use
  Company Number: US-ABBVIE-14P-163-1200272-00

PATIENT
  Age: 17 Year
  Sex: Male

DRUGS (8)
  1. PREPARATION H MEDICATED WIPES [Concomitant]
     Active Substance: WITCH HAZEL
     Indication: RECTAL FISSURE
  2. HUMIRA [Suspect]
     Active Substance: ADALIMUMAB
     Indication: CROHN^S DISEASE
     Dosage: LOADING DOSE
     Dates: start: 20140123, end: 20140123
  3. PREDNISONE. [Concomitant]
     Active Substance: PREDNISONE
     Indication: PRODUCT USED FOR UNKNOWN INDICATION
  4. PREDNISONE. [Concomitant]
     Active Substance: PREDNISONE
  5. HUMIRA [Suspect]
     Active Substance: ADALIMUMAB
  6. PREPARATION H MEDICATED WIPES [Concomitant]
     Active Substance: WITCH HAZEL
     Indication: HAEMORRHOIDS
  7. PREDNISONE. [Concomitant]
     Active Substance: PREDNISONE
  8. HYDROCORTISONE. [Concomitant]
     Active Substance: HYDROCORTISONE
     Indication: PRODUCT USED FOR UNKNOWN INDICATION

REACTIONS (2)
  - Psychomotor skills impaired [Not Recovered/Not Resolved]
  - Rectal haemorrhage [Unknown]

NARRATIVE: CASE EVENT DATE: 201401
